FAERS Safety Report 10065264 (Version 1)
Quarter: 2014Q2

REPORT INFORMATION
  Report Type: Spontaneous
  Country: US (occurrence: US)
  Receive Date: 20140408
  Receipt Date: 20140408
  Transmission Date: 20141212
  Serious: Yes (Other)
  Sender: FDA-Public Use
  Company Number: US-PFIZER INC-2014095861

PATIENT
  Age: 75 Year
  Sex: Female
  Weight: 39.91 kg

DRUGS (2)
  1. LATANOPROST [Suspect]
     Indication: OPEN ANGLE GLAUCOMA
     Dosage: 1 GTT, DAILY AT NIGHT
     Route: 047
     Dates: start: 2011, end: 2013
  2. LATANOPROST [Suspect]
     Indication: GLAUCOMA
     Dosage: 1 GTT, DAILY AT NIGHT
     Route: 047

REACTIONS (9)
  - Blindness unilateral [Unknown]
  - Ovarian cyst [Unknown]
  - Drug intolerance [Unknown]
  - Blepharitis [Unknown]
  - Lacrimation decreased [Unknown]
  - Discomfort [Unknown]
  - Eye disorder [Unknown]
  - Reaction to preservatives [Unknown]
  - Dry eye [Unknown]
